FAERS Safety Report 23787625 (Version 1)
Quarter: 2024Q2

REPORT INFORMATION
  Report Type: Spontaneous
  Country: US (occurrence: US)
  Receive Date: 20240426
  Receipt Date: 20240426
  Transmission Date: 20240716
  Serious: Yes (Death, Other)
  Sender: FDA-Public Use
  Company Number: US-BRISTOL-MYERS SQUIBB COMPANY-2024-062150

PATIENT
  Age: 70 Year
  Sex: Male

DRUGS (3)
  1. ISTODAX [Suspect]
     Active Substance: ROMIDEPSIN
     Indication: Peripheral T-cell lymphoma unspecified
     Dosage: FREQUENCY: EVERY 21 DAYS ON DAYS 1 AND 8 IN A 28 DAY CYCLE
     Route: 042
  2. ISTODAX [Suspect]
     Active Substance: ROMIDEPSIN
     Dosage: FREQUENCY: EVERY 21 DAYS ON DAYS 1 AND 8 IN A 28 DAY CYCLE
     Route: 042
  3. ISTODAX [Suspect]
     Active Substance: ROMIDEPSIN
     Dosage: FREQUENCY: EVERY 21 DAYS ON DAYS 1 AND 8 IN A 28 DAY CYCLE
     Route: 042

REACTIONS (2)
  - Death [Fatal]
  - Off label use [Unknown]

NARRATIVE: CASE EVENT DATE: 20240409
